FAERS Safety Report 16568886 (Version 1)
Quarter: 2019Q3

REPORT INFORMATION
  Report Type: Spontaneous
  Country: GB (occurrence: GB)
  Receive Date: 20190713
  Receipt Date: 20190713
  Transmission Date: 20191004
  Serious: Yes (Life-Threatening, Hospitalization, Other)
  Sender: FDA-Public Use
  Company Number: GB-TEVA-2019-GB-1076599

PATIENT
  Age: 81 Year
  Sex: Female

DRUGS (4)
  1. BUMETANIDE. [Suspect]
     Active Substance: BUMETANIDE
     Indication: CARDIAC FAILURE
     Dosage: HIGHER DOSE STARTED
     Route: 048
     Dates: start: 201809
  2. CANDESARTAN. [Suspect]
     Active Substance: CANDESARTAN
     Indication: CARDIAC FAILURE
     Route: 048
     Dates: end: 20190404
  3. LANSOPRAZOLE. [Suspect]
     Active Substance: LANSOPRAZOLE
     Dosage: REGULARLY, 60 MG PER DAY
     Route: 048
     Dates: end: 20190404
  4. SPIRONOLACTONE. [Suspect]
     Active Substance: SPIRONOLACTONE
     Indication: CARDIAC FAILURE
     Dosage: HIGHER DOSE STARTED
     Route: 048
     Dates: start: 201812

REACTIONS (4)
  - Hyponatraemia [Recovered/Resolved]
  - Hypotension [Recovering/Resolving]
  - Drug monitoring procedure not performed [Unknown]
  - Fatigue [Recovering/Resolving]

NARRATIVE: CASE EVENT DATE: 20190404
